FAERS Safety Report 14405296 (Version 3)
Quarter: 2018Q1

REPORT INFORMATION
  Report Type: Spontaneous
  Country: US (occurrence: US)
  Receive Date: 20180118
  Receipt Date: 20180228
  Transmission Date: 20180509
  Serious: No
  Sender: FDA-Public Use
  Company Number: US-BAYER-2018-010260

PATIENT
  Age: 57 Year
  Sex: Female

DRUGS (14)
  1. BETASERON [Suspect]
     Active Substance: INTERFERON BETA-1B
     Indication: MULTIPLE SCLEROSIS
     Dosage: 0.25 MG, UNK
     Route: 058
     Dates: start: 2002
  2. LISINOPRIL. [Concomitant]
     Active Substance: LISINOPRIL
  3. FERROUS SULFATE. [Concomitant]
     Active Substance: FERROUS SULFATE
  4. METHOTREXATE. [Concomitant]
     Active Substance: METHOTREXATE
  5. SULFASALAZINE. [Concomitant]
     Active Substance: SULFASALAZINE
  6. VITAMIN D3 [Concomitant]
     Active Substance: CHOLECALCIFEROL
  7. CRANBERRY. [Concomitant]
     Active Substance: CRANBERRY
  8. SYNTHROID [Concomitant]
     Active Substance: LEVOTHYROXINE SODIUM
  9. FOLIC ACID. [Concomitant]
     Active Substance: FOLIC ACID
  10. ALEVE [Concomitant]
     Active Substance: NAPROXEN SODIUM
  11. BETASERON [Suspect]
     Active Substance: INTERFERON BETA-1B
     Indication: MULTIPLE SCLEROSIS
     Dosage: 0.3 MG, UNK
     Dates: start: 200210
  12. FUROSEMIDE. [Concomitant]
     Active Substance: FUROSEMIDE
  13. MULTIVITAMIN [Concomitant]
     Active Substance: VITAMINS
  14. FISH OIL [Concomitant]
     Active Substance: FISH OIL

REACTIONS (9)
  - Insomnia [None]
  - Cough [None]
  - Peripheral swelling [None]
  - Malaise [None]
  - Depression [None]
  - Depression [Not Recovered/Not Resolved]
  - Alopecia [Recovered/Resolved]
  - Influenza [None]
  - Hypoaesthesia [None]
